FAERS Safety Report 20882894 (Version 1)
Quarter: 2022Q2

REPORT INFORMATION
  Report Type: Spontaneous
  Country: US (occurrence: US)
  Receive Date: 20220527
  Receipt Date: 20220527
  Transmission Date: 20220721
  Serious: Yes (Other)
  Sender: FDA-Public Use
  Company Number: US-Blueprint Medicines Corporation-136

PATIENT
  Sex: Female

DRUGS (1)
  1. AYVAKIT [Suspect]
     Active Substance: AVAPRITINIB
     Indication: Systemic mastocytosis
     Route: 048

REACTIONS (10)
  - Cataract [Unknown]
  - Laboratory test abnormal [Unknown]
  - Borderline glaucoma [Unknown]
  - Ocular hypertension [Unknown]
  - Oedema peripheral [Recovering/Resolving]
  - Periorbital oedema [Recovering/Resolving]
  - Headache [Unknown]
  - Anaemia [Unknown]
  - Pain [Unknown]
  - Sciatica [Unknown]
